FAERS Safety Report 5598133-X (Version None)
Quarter: 2008Q1

REPORT INFORMATION
  Report Type: 
  Country: None (occurrence: None)
  Receive Date: 20080117
  Receipt Date: 20080117
  Transmission Date: 20080703
  Serious: No
  Sender: FDA-Public Use
  Company Number: None

PATIENT
  Sex: Female

DRUGS (1)
  1. LAMISIL [Suspect]
     Indication: ONYCHOMYCOSIS
     Dosage: 250MG ONCE DAILY ORALLY
     Route: 048
     Dates: start: 20071103, end: 20071205

REACTIONS (4)
  - AGEUSIA [None]
  - DRY MOUTH [None]
  - ORAL INTAKE REDUCED [None]
  - SWOLLEN TONGUE [None]
